FAERS Safety Report 4344391-9 (Version None)
Quarter: 2004Q2

REPORT INFORMATION
  Report Type: 
  Country: None (occurrence: None)
  Receive Date: 20040419
  Receipt Date: 20040402
  Transmission Date: 20050107
  Serious: Yes (Hospitalization, Other)
  Sender: FDA-Public Use
  Company Number: USA-2003-0009082

PATIENT
  Age: 47 Year
  Sex: Female
  Weight: 106.6 kg

DRUGS (18)
  1. MS CONTIN [Suspect]
     Indication: PAIN
     Dosage: SEE IMAGE
     Route: 048
     Dates: start: 20030821
  2. KADIAN [Suspect]
     Indication: PAIN
     Dosage: 50 MG, TID, ORAL
     Route: 048
     Dates: end: 20030821
  3. ELAVIL [Concomitant]
  4. XANAX [Concomitant]
  5. NEURONTIN [Concomitant]
  6. PREVACID [Concomitant]
  7. PROCARDIA XL [Concomitant]
  8. DURAGESIC [Concomitant]
  9. ZOLOFT [Concomitant]
  10. NEXIUM [Concomitant]
  11. MIRALAX [Concomitant]
  12. TOPAMAX [Concomitant]
  13. ALBUTEROL [Concomitant]
  14. IPRATROPIUM BROMIDE [Concomitant]
  15. PLAVIX [Concomitant]
  16. ZESTRIL [Concomitant]
  17. PREMARIN [Concomitant]
  18. LIMBITROL (AMITRIPTYLINE HYDROCHLORIDE, CHLORDIAZEPOXIDE) [Concomitant]

REACTIONS (43)
  - ANXIETY [None]
  - ASTHENIA [None]
  - ASTHMA [None]
  - BLISTER [None]
  - BRONCHITIS [None]
  - BURNING SENSATION [None]
  - CHRONIC OBSTRUCTIVE AIRWAYS DISEASE EXACERBATED [None]
  - CONSTIPATION [None]
  - DELUSION [None]
  - DIARRHOEA [None]
  - DRUG ABUSER [None]
  - DRUG EFFECT DECREASED [None]
  - DRUG INEFFECTIVE [None]
  - DYSPHONIA [None]
  - DYSPNOEA [None]
  - FAECALOMA [None]
  - GASTROOESOPHAGEAL REFLUX DISEASE [None]
  - HALLUCINATION, AUDITORY [None]
  - HALLUCINATION, OLFACTORY [None]
  - HALLUCINATION, VISUAL [None]
  - HOARSENESS [None]
  - HYPOXIA [None]
  - IMPAIRED GASTRIC EMPTYING [None]
  - LARYNGOSPASM [None]
  - LIVER FUNCTION TEST ABNORMAL [None]
  - MAJOR DEPRESSION [None]
  - MELANOSIS COLI [None]
  - MUSCLE SPASMS [None]
  - OEDEMA PERIPHERAL [None]
  - OXYGEN SATURATION DECREASED [None]
  - PAIN IN EXTREMITY [None]
  - PANIC ATTACK [None]
  - PO2 DECREASED [None]
  - PSYCHOTIC DISORDER [None]
  - REFLEX SYMPATHETIC DYSTROPHY [None]
  - SEDATION [None]
  - SENSORY DISTURBANCE [None]
  - SLEEP DISORDER [None]
  - SOMATISATION DISORDER [None]
  - SWELLING [None]
  - TREMOR [None]
  - VOCAL CORD DISORDER [None]
  - WHEEZING [None]
